FAERS Safety Report 8902344 (Version 1)
Quarter: 2012Q4

REPORT INFORMATION
  Report Type: 
  Country: US (occurrence: US)
  Receive Date: 20121112
  Receipt Date: 20121112
  Transmission Date: 20130627
  Serious: No
  Sender: FDA-Public Use
  Company Number: US-PFIZER INC-2012280086

PATIENT
  Age: 59 Year
  Sex: Female

DRUGS (16)
  1. LYRICA [Suspect]
     Dosage: 75 mg, 2x/day
     Route: 048
  2. LYRICA [Suspect]
     Dosage: 150 mg, Bedtime
     Route: 048
  3. EFFEXOR XR [Suspect]
     Indication: FIBROMYALGIA
     Dosage: 75 mg, 1x/day
  4. EFFEXOR XR [Suspect]
     Indication: DEPRESSION
     Dosage: 300 mg, 1x/day
     Route: 048
  5. MOBIC [Suspect]
     Dosage: 7.5 mg, 1x/day
  6. AMBIEN [Suspect]
     Indication: FIBROMYALGIA
     Dosage: 10 mg, Bedtime
  7. AMBIEN [Suspect]
     Indication: DEPRESSION
  8. ACTONEL [Suspect]
     Indication: OSTEOPENIA
     Dosage: UNK
  9. FLEXERIL [Suspect]
     Dosage: 10 mg, 1x/day
  10. TYLENOL [Concomitant]
     Dosage: 650 mg, as needed
  11. KEPPRA [Concomitant]
     Dosage: 250 mg, (1 tab daily)
  12. MELOXICAM [Concomitant]
     Dosage: 7.5 mg, 1x/day
  13. CYCLOBENZAPRINE HYDROCHLORIDE [Concomitant]
     Dosage: 10 mg, ( 1 tab at night as needed)
  14. NORCO [Concomitant]
     Dosage: 325 mg-5 mg tablet 1 tab q 8 hrs prn
  15. VITAMIN D [Concomitant]
     Dosage: 50000 IU, weekly
  16. ZOLPIDEM TARTRATE [Concomitant]
     Dosage: 10 mg, 1x/day (At bedtime)

REACTIONS (15)
  - Arthralgia [Unknown]
  - Musculoskeletal stiffness [Unknown]
  - Pain [Unknown]
  - Muscular weakness [Unknown]
  - Myalgia [Unknown]
  - Asthenia [Unknown]
  - Fatigue [Unknown]
  - Dry eye [Unknown]
  - Photosensitivity reaction [Unknown]
  - Insomnia [Unknown]
  - Dyspepsia [Unknown]
  - Headache [Unknown]
  - Sinus headache [Unknown]
  - Stomatitis [Unknown]
  - Joint swelling [Unknown]
